FAERS Safety Report 4583275-8 (Version None)
Quarter: 2005Q1

REPORT INFORMATION
  Report Type: 
  Country: None (occurrence: None)
  Receive Date: 20050125
  Receipt Date: 20041012
  Transmission Date: 20050727
  Serious: No
  Sender: FDA-Public Use
  Company Number: USA040669889

PATIENT
  Age: 76 Year
  Sex: Female
  Weight: 43 kg

DRUGS (5)
  1. FORTEO [Suspect]
     Indication: OSTEOPOROSIS
     Dosage: 20 UG DAY
     Dates: start: 20040602
  2. MORPHINE [Concomitant]
  3. COZAAR [Concomitant]
  4. ATENOLOL [Concomitant]
  5. MULTI-VITAMIN [Concomitant]

REACTIONS (7)
  - ABDOMINAL DISTENSION [None]
  - ARTHRITIS [None]
  - ASTHENIA [None]
  - DIARRHOEA [None]
  - GENERALISED ERYTHEMA [None]
  - INJECTION SITE ERYTHEMA [None]
  - SWELLING FACE [None]
